FAERS Safety Report 11779214 (Version 1)
Quarter: 2015Q4

REPORT INFORMATION
  Report Type: Spontaneous
  Country: US (occurrence: US)
  Receive Date: 20151125
  Receipt Date: 20151125
  Transmission Date: 20160304
  Serious: Yes (Death)
  Sender: FDA-Public Use
  Company Number: US-PFIZER INC-2015401254

PATIENT
  Age: 55 Year
  Sex: Male
  Weight: 50 kg

DRUGS (2)
  1. RAPAMUNE [Suspect]
     Active Substance: SIROLIMUS
     Dosage: 1 MG, UNK
     Route: 048
  2. RAPAMUNE [Suspect]
     Active Substance: SIROLIMUS
     Indication: TRANSPLANT
     Dosage: 0.5 MG, UNK
     Route: 048
     Dates: start: 201507

REACTIONS (6)
  - Fungal infection [Fatal]
  - Pneumonia [Fatal]
  - Peripheral swelling [Not Recovered/Not Resolved]
  - White blood cell count decreased [Unknown]
  - Thrombosis [Not Recovered/Not Resolved]
  - Bacterial infection [Fatal]
